FAERS Safety Report 20058646 (Version 1)
Quarter: 2021Q4

REPORT INFORMATION
  Report Type: Spontaneous
  Country: US (occurrence: None)
  Receive Date: 20211111
  Receipt Date: 20211111
  Transmission Date: 20220303
  Serious: Yes (Hospitalization)
  Sender: FDA-Public Use
  Company Number: None

PATIENT
  Age: 89 Year
  Sex: Male

DRUGS (1)
  1. PADCEV [Suspect]
     Active Substance: ENFORTUMAB VEDOTIN-EJFV
     Indication: Transitional cell carcinoma
     Dosage: OTHER FREQUENCY : DAY 1 + 8 Q 21 DAY;?
     Route: 042

REACTIONS (6)
  - Injection site extravasation [None]
  - Injection site inflammation [None]
  - Injection site erythema [None]
  - Injection site vesicles [None]
  - Injection site exfoliation [None]
  - Pain [None]

NARRATIVE: CASE EVENT DATE: 20211013
